FAERS Safety Report 19989702 (Version 1)
Quarter: 2021Q4

REPORT INFORMATION
  Report Type: Other
  Country: JP (occurrence: JP)
  Receive Date: 20211025
  Receipt Date: 20211025
  Transmission Date: 20220303
  Serious: Yes (Other)
  Sender: FDA-Public Use
  Company Number: JP-CHUGAI-2021022459

PATIENT
  Sex: Female

DRUGS (4)
  1. CELLCEPT [Suspect]
     Active Substance: MYCOPHENOLATE MOFETIL\MYCOPHENOLATE MOFETIL HYDROCHLORIDE
     Indication: Prophylaxis against transplant rejection
     Route: 048
  2. TACROLIMUS [Concomitant]
     Active Substance: TACROLIMUS
     Indication: Prophylaxis against transplant rejection
     Route: 065
  3. EVEROLIMUS [Concomitant]
     Active Substance: EVEROLIMUS
     Indication: Prophylaxis against transplant rejection
     Route: 065
  4. ADRENAL HORMONE PREPARATIONS (UNK INGREDIENTS) [Concomitant]
     Indication: Prophylaxis against transplant rejection
     Route: 042

REACTIONS (4)
  - Epstein-Barr virus associated lymphoproliferative disorder [Unknown]
  - Renal failure [Unknown]
  - Renal impairment [Unknown]
  - Abdominal discomfort [Unknown]
